FAERS Safety Report 6567088-3 (Version None)
Quarter: 2010Q1

REPORT INFORMATION
  Report Type: 
  Country: None (occurrence: None)
  Receive Date: 20100202
  Receipt Date: 20100128
  Transmission Date: 20100710
  Serious: Yes (Other)
  Sender: FDA-Public Use
  Company Number: AU-RB-001398-10

PATIENT
  Age: 74 Year
  Sex: Female

DRUGS (2)
  1. NORSPAN 10 [Suspect]
     Indication: PAIN
     Dosage: 10 MICROGRAM PER HOUR
     Route: 062
  2. ACETAMINOPHEN W/ CODEINE [Concomitant]
     Indication: PAIN
     Dosage: DOSING INFORMATION UNKNOWN.
     Route: 048

REACTIONS (1)
  - HALLUCINATION [None]
